FAERS Safety Report 4471427-7 (Version None)
Quarter: 2004Q4

REPORT INFORMATION
  Report Type: 
  Country: None (occurrence: None)
  Receive Date: 20041012
  Receipt Date: 20041004
  Transmission Date: 20050328
  Serious: Yes (Hospitalization)
  Sender: FDA-Public Use
  Company Number: PHNU2004DE03428

PATIENT
  Age: 72 Year
  Sex: Female

DRUGS (5)
  1. ZOMETA [Suspect]
     Indication: METASTASES TO BONE
     Route: 042
     Dates: start: 20020101
  2. AREDIA [Concomitant]
     Indication: METASTASES TO BONE
     Dates: start: 19990101, end: 20020101
  3. FEMARA [Concomitant]
     Indication: BREAST CANCER
     Route: 048
     Dates: start: 19990101
  4. CHEMOTHERAPEUTICS,OTHER [Concomitant]
     Indication: BREAST CANCER
  5. INSULIN [Concomitant]

REACTIONS (5)
  - BONE FISTULA [None]
  - DENTAL OPERATION [None]
  - OSTECTOMY [None]
  - OSTEOMYELITIS [None]
  - SINUSITIS [None]
